FAERS Safety Report 7628615-8 (Version None)
Quarter: 2011Q3

REPORT INFORMATION
  Report Type: 
  Country: None (occurrence: None)
  Receive Date: 20110722
  Receipt Date: 20110301
  Transmission Date: 20111222
  Serious: No
  Sender: FDA-Public Use
  Company Number: US-BAYER-2011-019226

PATIENT
  Sex: Male

DRUGS (10)
  1. BETASERON [Suspect]
     Dosage: 8 MIU, QOD
     Route: 058
  2. CO Q-10 [Concomitant]
  3. VITAMIN A [Concomitant]
     Dosage: 1000 U, UNK
  4. VITAMIN B [Concomitant]
     Dosage: UNK U, UNK
  5. DILTIAZEM [Concomitant]
     Dosage: 120 MG, UNK
  6. ASPIRIN [Concomitant]
     Dosage: 81 MG, UNK
  7. MULTI-VITAMIN [Concomitant]
  8. VITAMIN D [Concomitant]
     Dosage: 1000 U, UNK
  9. PLAVIX [Concomitant]
     Dosage: 75 MG, UNK
  10. VITAMIN B-12 [Concomitant]
     Dosage: 500 ?G, UNK

REACTIONS (1)
  - FATIGUE [None]
